FAERS Safety Report 24291956 (Version 3)
Quarter: 2024Q4

REPORT INFORMATION
  Report Type: Spontaneous
  Country: US (occurrence: US)
  Receive Date: 20240906
  Receipt Date: 20241203
  Transmission Date: 20250115
  Serious: No
  Sender: PFIZER
  Company Number: US-PFIZER INC-PV202400047946

PATIENT
  Age: 2 Year
  Sex: Female
  Weight: 8.7 kg

DRUGS (2)
  1. GENOTROPIN [Suspect]
     Active Substance: SOMATROPIN
     Indication: Silver-Russell syndrome
     Dosage: 0.3 MG/DAY, 7 DAYS/WEEK
  2. NORDITROPIN [Concomitant]
     Active Substance: SOMATROPIN
     Dosage: 0.3 MG, DAILY (15 MG/1.5 ML SUBCUTANEOUS SOLUTION)
     Route: 058

REACTIONS (3)
  - Device malfunction [Unknown]
  - Drug dose omission by device [Unknown]
  - Off label use [Unknown]

NARRATIVE: CASE EVENT DATE: 20240801
